FAERS Safety Report 7557250-5 (Version None)
Quarter: 2011Q2

REPORT INFORMATION
  Report Type: 
  Country: None (occurrence: None)
  Receive Date: 20110620
  Receipt Date: 20110608
  Transmission Date: 20111010
  Serious: Yes (Other)
  Sender: FDA-Public Use
  Company Number: HU-ROCHE-777982

PATIENT
  Sex: Female
  Weight: 87 kg

DRUGS (2)
  1. ACTEMRA [Suspect]
     Dosage: TOTAL MONTHLY DOSE: 696 MG
     Route: 042
     Dates: start: 20100511
  2. ACTEMRA [Suspect]
     Dosage: LATEST INFUSION ON 16 MAY 2011 AT DOSE 4MG/KG
     Route: 042
     Dates: start: 20110117

REACTIONS (1)
  - ACOUSTIC NEUROMA [None]
